FAERS Safety Report 8445391-X (Version None)
Quarter: 2012Q2

REPORT INFORMATION
  Report Type: 
  Country: None (occurrence: None)
  Receive Date: 20120618
  Receipt Date: 20110919
  Transmission Date: 20120825
  Serious: Yes (Other)
  Sender: FDA-Public Use
  Company Number: US-TEVA-2011004984

PATIENT
  Sex: Female

DRUGS (4)
  1. FENTORA [Suspect]
     Dosage: 1600 MICROGRAM;
     Route: 002
     Dates: start: 20110901
  2. SYNTHROID [Concomitant]
     Indication: HYPOTHYROIDISM
  3. FENTORA [Suspect]
     Indication: BACK PAIN
     Dosage: 1200 MICROGRAM;
     Route: 002
     Dates: start: 20100101, end: 20110907
  4. LIPITOR [Concomitant]

REACTIONS (2)
  - DRUG PRESCRIBING ERROR [None]
  - DRUG INEFFECTIVE FOR UNAPPROVED INDICATION [None]
